FAERS Safety Report 6734399-8 (Version None)
Quarter: 2010Q2

REPORT INFORMATION
  Report Type: 
  Country: None (occurrence: None)
  Receive Date: 20100520
  Receipt Date: 20100508
  Transmission Date: 20101027
  Serious: Yes (Life-Threatening, Hospitalization, Other)
  Sender: FDA-Public Use
  Company Number: AT-ELI_LILLY_AND_COMPANY-AT201005002156

PATIENT
  Age: 23 Year
  Sex: Male
  Weight: 72 kg

DRUGS (7)
  1. ZYPREXA [Suspect]
     Indication: ACUTE PSYCHOSIS
     Dosage: UNK UNK, DAILY (1/D)
     Route: 048
     Dates: start: 20100217, end: 20100223
  2. ZYPREXA [Suspect]
     Dosage: 20 MG, DAILY (1/D)
     Route: 048
     Dates: start: 20100224
  3. HALDOL [Concomitant]
     Indication: ACUTE PSYCHOSIS
     Dosage: 10 MG, UNK
     Route: 030
     Dates: start: 20100217, end: 20100217
  4. RISPERDAL [Concomitant]
     Dosage: 2 MG, DAILY (1/D)
     Dates: start: 20100222, end: 20100302
  5. SEROQUEL [Concomitant]
     Dosage: 50 MG, DAILY (1/D)
     Dates: start: 20100220, end: 20100221
  6. DIAZEPAM [Concomitant]
     Dosage: 10 MG, DAILY (1/D)
     Dates: start: 20100217
  7. MARCUMAR [Concomitant]
     Dates: start: 20100308

REACTIONS (6)
  - ANTIPHOSPHOLIPID SYNDROME [None]
  - OVERDOSE [None]
  - PNEUMONIA [None]
  - PULMONARY EMBOLISM [None]
  - SEDATION [None]
  - THROMBOPHLEBITIS SUPERFICIAL [None]
